FAERS Safety Report 10755809 (Version 1)
Quarter: 2015Q1

REPORT INFORMATION
  Report Type: Spontaneous
  Country: ES (occurrence: ES)
  Receive Date: 20150202
  Receipt Date: 20150202
  Transmission Date: 20150721
  Serious: Yes (Death)
  Sender: FDA-Public Use
  Company Number: ES-ABBVIE-15P-144-1340334-00

PATIENT
  Age: 80 Year
  Sex: Male

DRUGS (3)
  1. DUODOPA [Suspect]
     Active Substance: CARBIDOPA\LEVODOPA
     Indication: PARKINSON^S DISEASE
     Route: 050
     Dates: start: 200903
  2. DISGREN [Concomitant]
     Indication: PROPHYLAXIS
  3. DISGREN [Concomitant]
     Indication: PLATELET AGGREGATION ABNORMAL

REACTIONS (11)
  - Aspiration bronchial [Fatal]
  - Abdominal pain [Fatal]
  - Hypotension [Fatal]
  - Intestinal dilatation [Fatal]
  - Vomiting [Fatal]
  - Renal failure [Fatal]
  - Dyspnoea [Fatal]
  - Renal infarct [Fatal]
  - Tachypnoea [Fatal]
  - Intestinal infarction [Fatal]
  - Intestinal ischaemia [Fatal]

NARRATIVE: CASE EVENT DATE: 20150129
